FAERS Safety Report 15538259 (Version 1)
Quarter: 2018Q4

REPORT INFORMATION
  Report Type: Report from Study
  Country: TW (occurrence: TW)
  Receive Date: 20181022
  Receipt Date: 20181022
  Transmission Date: 20190205
  Serious: Yes (Death, Other)
  Sender: FDA-Public Use
  Company Number: TW-ASTELLAS-2018US045288

PATIENT
  Age: 73 Year
  Sex: Male

DRUGS (11)
  1. LEVOTHYROXIN [Concomitant]
     Active Substance: LEVOTHYROXINE
     Indication: HYPOTHYROIDISM
     Dosage: 1 DF, ONCE DAILY/AC
     Route: 065
  2. DULOXETINE. [Concomitant]
     Active Substance: DULOXETINE
     Indication: DEMENTIA
     Dosage: 2 UNIT DOSE (TOTAL DOSE), TWICE DAILY
     Route: 065
  3. ENZALUTAMIDE [Suspect]
     Active Substance: ENZALUTAMIDE
     Indication: PROSTATE CANCER
     Route: 048
     Dates: end: 20180921
  4. CALCIUM ACETATE. [Concomitant]
     Active Substance: CALCIUM ACETATE
     Indication: OSTEOPOROSIS
     Dosage: 2 UNIT DOSE (DAILY DOSE), TWICE DAILY
     Route: 065
  5. LEUPRORELIN [Concomitant]
     Active Substance: LEUPROLIDE ACETATE
     Indication: PROSTATE CANCER
     Dosage: UNK UNK, MONTHLY
     Route: 065
  6. ACETAMINOPHEN. [Concomitant]
     Active Substance: ACETAMINOPHEN
     Indication: BONE PAIN
     Route: 065
  7. MECOBALAMIN [Concomitant]
     Active Substance: METHYLCOBALAMIN
     Indication: CARDIOVASCULAR INSUFFICIENCY
     Route: 065
  8. SOMA [Concomitant]
     Active Substance: CARISOPRODOL
     Indication: BONE PAIN
     Dosage: 2 UNIT DOSE (DAILY DOSE), TWICE DAILY
     Route: 065
  9. FLUNARIZINE [Concomitant]
     Active Substance: FLUNARIZINE
     Indication: PERIPHERAL VASCULAR DISORDER
     Dosage: 2 UNIT DOSE (DAILY DOSE), TWICE DAILY
     Route: 065
  10. FERRIC HYDROXIDE POLYMALTOSE [Concomitant]
     Active Substance: IRON POLYMALTOSE
     Indication: ANAEMIA
     Dosage: 1 DF, ONCE DAILY/AC
     Route: 065
  11. DIPYRIDAMOLE. [Concomitant]
     Active Substance: DIPYRIDAMOLE
     Indication: CEREBROVASCULAR DISORDER
     Dosage: 2 UNIT DOSE (DAILY DOSE) TWICE DAILY/AC
     Route: 065

REACTIONS (4)
  - Death [Fatal]
  - Body temperature decreased [Unknown]
  - Anaemia [Unknown]
  - Asthenia [Unknown]

NARRATIVE: CASE EVENT DATE: 20180920
